FAERS Safety Report 8022295-8 (Version None)
Quarter: 2011Q4

REPORT INFORMATION
  Report Type: 
  Country: None (occurrence: None)
  Receive Date: 20111123
  Receipt Date: 20110908
  Transmission Date: 20120403
  Serious: No
  Sender: FDA-Public Use
  Company Number: 335725

PATIENT
  Age: 58 Year
  Sex: Male

DRUGS (2)
  1. VICTOZA [Suspect]
     Indication: TYPE 2 DIABETES MELLITUS
     Dosage: 1.2 MG, QD, SUBCUTANEOUS
     Route: 058
  2. METFORMIN HCL [Suspect]
     Indication: TYPE 2 DIABETES MELLITUS
     Dates: start: 20110101

REACTIONS (6)
  - WEIGHT DECREASED [None]
  - GLYCOSYLATED HAEMOGLOBIN DECREASED [None]
  - DIARRHOEA [None]
  - BLOOD GLUCOSE DECREASED [None]
  - ABDOMINAL PAIN UPPER [None]
  - NAUSEA [None]
